FAERS Safety Report 17959825 (Version 4)
Quarter: 2020Q3

REPORT INFORMATION
  Report Type: Spontaneous
  Country: CA (occurrence: CA)
  Receive Date: 20200630
  Receipt Date: 20200730
  Transmission Date: 20201103
  Serious: Yes (Hospitalization)
  Sender: FDA-Public Use
  Company Number: CA-ROCHE-2628814

PATIENT
  Age: 76 Year
  Sex: Male
  Weight: 90 kg

DRUGS (11)
  1. CLADRIBINE. [Concomitant]
     Active Substance: CLADRIBINE
  2. RITUXAN [Suspect]
     Active Substance: RITUXIMAB
     Indication: HAIRY CELL LEUKAEMIA
     Dosage: STRENGTH: 120MG/ML FOR DAY 1
     Route: 042
     Dates: start: 20191218, end: 20200212
  3. ROSUVASTATIN. [Concomitant]
     Active Substance: ROSUVASTATIN
  4. TAMSULOSIN [Concomitant]
     Active Substance: TAMSULOSIN
  5. RITUXAN [Suspect]
     Active Substance: RITUXIMAB
     Indication: HAIRY CELL LEUKAEMIA
     Dosage: STRENGTH: 120MG/ML ON DAY 8, 15, 22, 29, 36, 43, 50
     Route: 058
     Dates: start: 20200212
  6. PANTOPRAZOLE [Concomitant]
     Active Substance: PANTOPRAZOLE
  7. CLADRIBINE. [Concomitant]
     Active Substance: CLADRIBINE
  8. HYDROCHLOROTHIAZIDE. [Concomitant]
     Active Substance: HYDROCHLOROTHIAZIDE
  9. RITUXAN [Suspect]
     Active Substance: RITUXIMAB
     Route: 042
  10. TELMISARTAN. [Concomitant]
     Active Substance: TELMISARTAN
  11. VALACYCLOVIR [Concomitant]
     Active Substance: VALACYCLOVIR HYDROCHLORIDE

REACTIONS (1)
  - Progressive multifocal leukoencephalopathy [Recovering/Resolving]

NARRATIVE: CASE EVENT DATE: 20200316
